FAERS Safety Report 14379850 (Version 18)
Quarter: 2020Q3

REPORT INFORMATION
  Report Type: Spontaneous
  Country: US (occurrence: US)
  Receive Date: 20180112
  Receipt Date: 20200928
  Transmission Date: 20201102
  Serious: No
  Sender: FDA-Public Use
  Company Number: US-PFIZER INC-2017329872

PATIENT
  Age: 72 Year
  Sex: Female

DRUGS (10)
  1. IBRANCE [Suspect]
     Active Substance: PALBOCICLIB
     Dosage: UNK
  2. CRESTOR [Concomitant]
     Active Substance: ROSUVASTATIN CALCIUM
     Dosage: UNK
  3. IBRANCE [Suspect]
     Active Substance: PALBOCICLIB
     Indication: BREAST CANCER METASTATIC
     Dosage: 125 MG, CYCLIC (ONCE A DAY FOR 21 DAYS AND THEN OFF 7 DAYS)
     Route: 048
     Dates: start: 201704
  4. IBRANCE [Suspect]
     Active Substance: PALBOCICLIB
     Dosage: 125 MG, CYCLIC (ONCE A DAY)
     Route: 048
  5. IBRANCE [Suspect]
     Active Substance: PALBOCICLIB
     Dosage: 125 MG, CYCLIC (125 MG BY MOUTH FOR 21 DAYS AND THEN OFF 7)
     Route: 048
  6. OMEPRAZOLE. [Concomitant]
     Active Substance: OMEPRAZOLE
     Indication: GASTROOESOPHAGEAL REFLUX DISEASE
     Dosage: 20 MG  (ONE OR TWO TIMES)
  7. IBRANCE [Suspect]
     Active Substance: PALBOCICLIB
     Dosage: 100 MG
  8. LOSARTAN. [Concomitant]
     Active Substance: LOSARTAN
     Dosage: UNK
  9. IBRANCE [Suspect]
     Active Substance: PALBOCICLIB
     Dosage: 125 MG, CYCLIC (125 MG BY MOUTH FOR 21 DAYS AND THEN OFF 7)
     Route: 048
  10. LETROZOLE. [Concomitant]
     Active Substance: LETROZOLE
     Indication: NAUSEA
     Dosage: UNK

REACTIONS (6)
  - White blood cell count decreased [Unknown]
  - Fatigue [Unknown]
  - Product storage error [Unknown]
  - Neoplasm progression [Unknown]
  - Neutrophil count decreased [Unknown]
  - Poor quality product administered [Unknown]

NARRATIVE: CASE EVENT DATE: 2018
